FAERS Safety Report 23314115 (Version 2)
Quarter: 2023Q4

REPORT INFORMATION
  Report Type: Report from Study
  Country: AT (occurrence: AT)
  Receive Date: 20231219
  Receipt Date: 20231229
  Transmission Date: 20240110
  Serious: Yes (Hospitalization, Other)
  Sender: FDA-Public Use
  Company Number: AT-BAXTER-2023BAX037513

PATIENT
  Age: 76 Year
  Sex: Female
  Weight: 84 kg

DRUGS (23)
  1. DOXORUBICIN HYDROCHLORIDE [Suspect]
     Active Substance: DOXORUBICIN HYDROCHLORIDE
     Indication: Diffuse large B-cell lymphoma
     Dosage: 96.59 MG, EVERY 3 WEEKS
     Route: 042
     Dates: start: 20231113, end: 20231113
  2. VINCRISTINE SULFATE [Suspect]
     Active Substance: VINCRISTINE SULFATE
     Indication: Diffuse large B-cell lymphoma
     Dosage: 2 MG, EVERY 3 WEEKS
     Route: 042
     Dates: start: 20231113, end: 20231113
  3. RITUXIMAB [Suspect]
     Active Substance: RITUXIMAB
     Indication: Diffuse large B-cell lymphoma
     Dosage: 724.44 MG, EVERY 3 WEEKS
     Route: 042
     Dates: start: 20231113, end: 20231113
  4. PREDNISONE [Suspect]
     Active Substance: PREDNISONE
     Indication: Diffuse large B-cell lymphoma
     Dosage: C1-6, DAY 1-5, EVERY 1 DAYS
     Route: 048
     Dates: start: 20231113, end: 20231117
  5. CYCLOPHOSPHAMIDE [Suspect]
     Active Substance: CYCLOPHOSPHAMIDE
     Indication: Diffuse large B-cell lymphoma
     Dosage: 1448.88 MG, EVERY 3 WEEKS
     Route: 042
     Dates: start: 20231113, end: 20231113
  6. EPCORITAMAB [Suspect]
     Active Substance: EPCORITAMAB
     Indication: Diffuse large B-cell lymphoma
     Dosage: 0.16 MG PRIMING DOSE; C1, D1, TOTAL
     Route: 058
     Dates: start: 20231114, end: 20231114
  7. LIDAPRIM [SULFAMETROLE SODIUM;TRIMETHOPRIM] [Concomitant]
     Indication: Infection prophylaxis
     Dosage: 800 MG SULFAMTROL/160 MG TRIMETHOPRIM, 3/WEEKS
     Dates: start: 20231115
  8. BISOPROLOL [Concomitant]
     Active Substance: BISOPROLOL\BISOPROLOL FUMARATE
     Indication: Atrial fibrillation
     Dosage: 5 MG, DAILY
     Dates: start: 1998
  9. APREPITANT [Concomitant]
     Active Substance: APREPITANT
     Indication: Prophylaxis of nausea and vomiting
     Dosage: 125/80 MG, OCCASIONAL
     Dates: start: 20231113
  10. LEVOTHYROXINE SODIUM [Concomitant]
     Active Substance: LEVOTHYROXINE SODIUM
     Indication: Product substitution
     Dosage: 50 UG, DAILY
     Dates: start: 1994
  11. ATORVASTATIN [Concomitant]
     Active Substance: ATORVASTATIN
     Dosage: 80 MG, DAILY
     Route: 065
     Dates: start: 20231108
  12. FUROSEMIDE [Concomitant]
     Active Substance: FUROSEMIDE
     Dosage: 30 MG, DAILY
     Dates: start: 20231108
  13. ALLOPURINOL [Concomitant]
     Active Substance: ALLOPURINOL
     Indication: Prophylaxis
     Dosage: 300 MG, DAILY
     Route: 065
     Dates: start: 20231116
  14. SICCAFORTE [Concomitant]
     Indication: Eye disorder prophylaxis
     Dosage: OCCASIONAL
     Route: 065
     Dates: start: 2020
  15. URSODIOL [Concomitant]
     Active Substance: URSODIOL
     Indication: Primary biliary cholangitis
     Dosage: TWICE, UNKNOWN ROUTE
     Route: 065
     Dates: start: 202105
  16. PANTOPRAZOLE [Concomitant]
     Active Substance: PANTOPRAZOLE
     Indication: Gastrointestinal disorder prophylaxis
     Dosage: 40 MG, DAILY
     Route: 065
     Dates: start: 20231114
  17. GEROVIT [ASCORBIC ACID;CYANOCOBALAMIN;ERGOCALCIFEROL;NICOTINAMIDE;PYRI [Concomitant]
     Indication: Vitamin supplementation
     Dosage: 40 DROP, WEEKLY
  18. CHLORHEXAMED FORTE [Concomitant]
     Indication: Prophylaxis
     Dosage: 500 ML, EVERY 6 HOURS
     Dates: start: 20231112
  19. CHLORHEXAMED FORTE [Concomitant]
     Indication: Stomatitis
  20. CANDESARTAN [Concomitant]
     Active Substance: CANDESARTAN
     Indication: Hypertension
     Dosage: 8 MG, DAILY
     Dates: start: 2003
  21. RIVAROXABAN [Concomitant]
     Active Substance: RIVAROXABAN
     Indication: Atrial fibrillation
     Dosage: 20 MG, DAILY
     Dates: start: 202005
  22. DIOSMIN [Concomitant]
     Active Substance: DIOSMIN
     Indication: Peripheral venous disease
     Dosage: 500 MG, DAILY
     Route: 065
     Dates: start: 2003
  23. VIROPEL [Concomitant]
     Indication: Antiviral prophylaxis
     Dosage: 500 MG, DAILY
     Dates: start: 20231115

REACTIONS (1)
  - Febrile neutropenia [Recovered/Resolved]

NARRATIVE: CASE EVENT DATE: 20231123
